FAERS Safety Report 5877397-9 (Version None)
Quarter: 2008Q3

REPORT INFORMATION
  Report Type: 
  Country: None (occurrence: None)
  Receive Date: 20080909
  Receipt Date: 20080825
  Transmission Date: 20090109
  Serious: Yes (Hospitalization)
  Sender: FDA-Public Use
  Company Number: 2008US001813

PATIENT
  Age: 65 Year

DRUGS (1)
  1. AMEVIVE [Suspect]
     Indication: PSORIASIS

REACTIONS (1)
  - NON-CARDIAC CHEST PAIN [None]
